FAERS Safety Report 16610460 (Version 2)
Quarter: 2019Q3

REPORT INFORMATION
  Report Type: Spontaneous
  Country: US (occurrence: US)
  Receive Date: 20190722
  Receipt Date: 20190923
  Transmission Date: 20191004
  Serious: Yes (Hospitalization, Other)
  Sender: FDA-Public Use
  Company Number: US-PFIZER INC-2019297199

PATIENT
  Age: 73 Year
  Sex: Female
  Weight: 62.59 kg

DRUGS (11)
  1. ALEVE [Concomitant]
     Active Substance: NAPROXEN SODIUM
     Indication: BACK PAIN
  2. GARLIC [ALLIUM SATIVUM] [Concomitant]
     Active Substance: GARLIC
     Indication: VITAMIN SUPPLEMENTATION
     Dosage: UNK, WEEKLY
     Dates: start: 2017
  3. OMEGA 3 [DOCOSAHEXAENOIC ACID;EICOSAPENTAENOIC ACID;TOCOPHEROL] [Concomitant]
     Active Substance: DOCONEXENT\ICOSAPENT\TOCOPHEROL
     Indication: VITAMIN SUPPLEMENTATION
     Dosage: UNK, WEEKLY (TAKEN ABOUT ONCE WEEKLY IF SHE HAS NOT EATEN FISH THAT WEEK)
     Dates: start: 2017
  4. PREMARIN [Suspect]
     Active Substance: ESTROGENS, CONJUGATED
     Indication: WEIGHT INCREASED
     Dosage: 10 MG, 1X/DAY
  5. VITAMIN B12 [Concomitant]
     Active Substance: CYANOCOBALAMIN
     Indication: VITAMIN SUPPLEMENTATION
     Dosage: UNK, WEEKLY
     Dates: start: 2017
  6. AMLODIPINE BESILATE [Concomitant]
     Active Substance: AMLODIPINE BESYLATE
     Indication: BLOOD PRESSURE MEASUREMENT
     Dosage: 5 MG, 1X/DAY
     Route: 048
     Dates: start: 2015
  7. PREMARIN [Suspect]
     Active Substance: ESTROGENS, CONJUGATED
     Indication: HYSTERECTOMY
     Dosage: 1.25 MG, 1X/DAY
     Route: 048
     Dates: start: 1985
  8. ALEVE [Concomitant]
     Active Substance: NAPROXEN SODIUM
     Indication: NECK PAIN
     Dosage: 1 DF, 2X/DAY (MORNING AND EVENING)/[1 YEAR 12 HR SO AM+ PM]
     Route: 048
     Dates: start: 2016
  9. LEVOTHYROXINE. [Concomitant]
     Active Substance: LEVOTHYROXINE
     Indication: THYROID DISORDER
     Dosage: 0.088 MG, 1X/DAY
     Route: 048
     Dates: start: 1985
  10. SULFAMETH/TRIMETH [Concomitant]
     Active Substance: SULFAMETHOXAZOLE\TRIMETHOPRIM
     Indication: BLOOD PRESSURE ABNORMAL
     Dosage: 160 MG, 1X/DAY
     Route: 048
     Dates: start: 2015
  11. ZINC. [Concomitant]
     Active Substance: ZINC
     Indication: VITAMIN SUPPLEMENTATION
     Dosage: UNK, WEEKLY
     Dates: start: 2017

REACTIONS (7)
  - Fall [Not Recovered/Not Resolved]
  - Urinary tract infection [Not Recovered/Not Resolved]
  - Ligament rupture [Unknown]
  - Off label use [Unknown]
  - Joint destruction [Recovering/Resolving]
  - Neck pain [Not Recovered/Not Resolved]
  - Back pain [Not Recovered/Not Resolved]

NARRATIVE: CASE EVENT DATE: 2016
